FAERS Safety Report 6634232-9 (Version None)
Quarter: 2010Q1

REPORT INFORMATION
  Report Type: 
  Country: None (occurrence: None)
  Receive Date: 20100315
  Receipt Date: 20100303
  Transmission Date: 20100710
  Serious: Yes (Hospitalization)
  Sender: FDA-Public Use
  Company Number: PHHY2010GB13328

PATIENT
  Sex: Female

DRUGS (1)
  1. CLIMAGEST [Suspect]
     Dosage: UNK
     Route: 048
     Dates: start: 20080101

REACTIONS (1)
  - UTERINE DISORDER [None]
